FAERS Safety Report 9460527 (Version 1)
Quarter: 2013Q3

REPORT INFORMATION
  Report Type: Spontaneous
  Country: DE (occurrence: DE)
  Receive Date: 20130815
  Receipt Date: 20130815
  Transmission Date: 20140515
  Serious: Yes (Death, Other)
  Sender: FDA-Public Use
  Company Number: DE-CELGENEUS-062-21660-13080450

PATIENT
  Sex: 0

DRUGS (1)
  1. ABRAXANE [Suspect]
     Indication: BREAST CANCER
     Route: 065

REACTIONS (15)
  - Death [Fatal]
  - Thrombocytopenia [Unknown]
  - Anaemia [Unknown]
  - Neutropenia [Unknown]
  - Thrombosis [Unknown]
  - Fatigue [Unknown]
  - Dyspnoea [Unknown]
  - Rash [Unknown]
  - Arthralgia [Unknown]
  - Pain [Unknown]
  - Cough [Unknown]
  - Infection [Unknown]
  - Polyneuropathy [Unknown]
  - Neuropathy peripheral [Unknown]
  - Breast cancer [Unknown]
